FAERS Safety Report 4361278-6 (Version None)
Quarter: 2004Q2

REPORT INFORMATION
  Report Type: 
  Country: None (occurrence: None)
  Receive Date: 20040520
  Receipt Date: 20040419
  Transmission Date: 20050107
  Serious: Yes (Hospitalization, Other)
  Sender: FDA-Public Use
  Company Number: GB-GLAXOSMITHKLINE-B0330282A

PATIENT
  Age: 41 Year
  Sex: Male

DRUGS (4)
  1. SEROXAT [Suspect]
     Indication: PANIC DISORDER
     Dosage: 20MG PER DAY
     Route: 048
     Dates: start: 20040413, end: 20040415
  2. CELECOXIB [Concomitant]
     Indication: SCIATICA
     Dosage: 200MG PER DAY
     Dates: start: 20040414
  3. DIHYDROCODEINE [Concomitant]
     Indication: SCIATICA
     Dosage: 30MG THREE TIMES PER DAY
     Dates: start: 20040414
  4. DICLOFENAC [Concomitant]
     Indication: GOUT
     Dosage: 50MG THREE TIMES PER DAY
     Dates: end: 20040414

REACTIONS (3)
  - ASTHENIA [None]
  - DYSSTASIA [None]
  - GOUT [None]
